FAERS Safety Report 25564032 (Version 1)
Quarter: 2025Q3

REPORT INFORMATION
  Report Type: Spontaneous
  Country: GB (occurrence: GB)
  Receive Date: 20250716
  Receipt Date: 20250716
  Transmission Date: 20251020
  Serious: Yes (Life-Threatening, Hospitalization, Other)
  Sender: AUROBINDO
  Company Number: GB-MHRA-EMIS-10031-0cf9e36a-194f-4ab0-857d-afcc237f4c02

PATIENT
  Age: 47 Year
  Sex: Male
  Weight: 116 kg

DRUGS (3)
  1. NITROFURANTOIN [Suspect]
     Active Substance: NITROFURANTOIN
     Indication: Product used for unknown indication
     Route: 065
     Dates: start: 20250616, end: 20250618
  2. AMLODIPINE [Concomitant]
     Active Substance: AMLODIPINE BESYLATE
     Indication: Essential hypertension
     Route: 065
     Dates: start: 20250702
  3. RAMIPRIL [Concomitant]
     Active Substance: RAMIPRIL
     Indication: Essential hypertension
     Route: 065
     Dates: start: 20250702

REACTIONS (1)
  - Malignant hypertension [Recovering/Resolving]

NARRATIVE: CASE EVENT DATE: 20250617
